FAERS Safety Report 17026617 (Version 1)
Quarter: 2019Q4

REPORT INFORMATION
  Report Type: Spontaneous
  Country: US (occurrence: US)
  Receive Date: 20191009
  Receipt Date: 20191009
  Transmission Date: 20200122
  Serious: Yes (Hospitalization)
  Sender: FDA-Public Use
  Company Number: None

PATIENT
  Age: 56 Year
  Sex: Female

DRUGS (14)
  1. ROSUVASTATIN. [Concomitant]
     Active Substance: ROSUVASTATIN
  2. ESOMEPRAZOLE. [Concomitant]
     Active Substance: ESOMEPRAZOLE MAGNESIUM
  3. FOLIC ACID. [Concomitant]
     Active Substance: FOLIC ACID
  4. STELARA [Suspect]
     Active Substance: USTEKINUMAB
     Indication: CROHN^S DISEASE
     Dosage: ?          OTHER FREQUENCY:Q 8 WEEKS;?
     Route: 058
     Dates: start: 201805
  5. VASCEPA [Concomitant]
     Active Substance: ICOSAPENT ETHYL
  6. CEFDINIR. [Concomitant]
     Active Substance: CEFDINIR
  7. MULTIVITAMINS (ASSORTED) [Concomitant]
  8. FLUTICASONE. [Concomitant]
     Active Substance: FLUTICASONE
  9. TRAZODONE [Concomitant]
     Active Substance: TRAZODONE HYDROCHLORIDE
  10. LISINOPRIL. [Concomitant]
     Active Substance: LISINOPRIL
  11. HUMALOG [Concomitant]
     Active Substance: INSULIN LISPRO
  12. DULOXETINE. [Concomitant]
     Active Substance: DULOXETINE
  13. BUPROPION. [Concomitant]
     Active Substance: BUPROPION
  14. ALPRAZOLAM. [Concomitant]
     Active Substance: ALPRAZOLAM

REACTIONS (1)
  - Urinary tract infection [None]

NARRATIVE: CASE EVENT DATE: 20191001
